FAERS Safety Report 6215575-X (Version None)
Quarter: 2009Q2

REPORT INFORMATION
  Report Type: 
  Country: None (occurrence: None)
  Receive Date: 20090605
  Receipt Date: 20080123
  Transmission Date: 20091009
  Serious: Yes (Other)
  Sender: FDA-Public Use
  Company Number: US-ASTRAZENECA-2007UW19106

PATIENT
  Age: 61 Year
  Sex: Female
  Weight: 76.7 kg

DRUGS (15)
  1. SEROQUEL [Suspect]
     Indication: DEPRESSION
     Route: 048
     Dates: start: 20000101, end: 20060101
  2. SEROQUEL [Suspect]
     Indication: BIPOLAR DISORDER
     Route: 048
     Dates: start: 20000101, end: 20060101
  3. SEROQUEL [Suspect]
     Route: 048
     Dates: start: 20041201
  4. SEROQUEL [Suspect]
     Route: 048
     Dates: start: 20041201
  5. GEODON [Concomitant]
     Dates: start: 20060101
  6. PAXIL [Concomitant]
  7. DEPAKOTE [Concomitant]
  8. TRAZODONE HCL [Concomitant]
  9. PREMARIN [Concomitant]
     Dates: start: 20010622
  10. NEURONTIN [Concomitant]
     Dates: start: 20010512
  11. CELEBREX [Concomitant]
     Dates: start: 20030317
  12. ZOCOR [Concomitant]
  13. CYMBALTA [Concomitant]
  14. HYOSCYAMINE [Concomitant]
  15. RITUXAN [Concomitant]

REACTIONS (7)
  - DIABETES MELLITUS [None]
  - DIABETIC NEPHROPATHY [None]
  - DIABETIC NEUROPATHY [None]
  - DIABETIC RETINOPATHY [None]
  - MEMORY IMPAIRMENT [None]
  - TYPE 2 DIABETES MELLITUS [None]
  - WEIGHT INCREASED [None]
